FAERS Safety Report 4751215-4 (Version None)
Quarter: 2005Q3

REPORT INFORMATION
  Report Type: 
  Country: None (occurrence: None)
  Receive Date: 20050823
  Receipt Date: 20050823
  Transmission Date: 20060218
  Serious: No
  Sender: FDA-Public Use
  Company Number: None

PATIENT
  Age: 23 Year
  Sex: Male

DRUGS (1)
  1. SEROQUEL [Suspect]
     Indication: PSYCHOTIC DISORDER
     Dosage: 200 MG BID PO
     Route: 048
     Dates: start: 20050813, end: 20050815

REACTIONS (2)
  - COGWHEEL RIGIDITY [None]
  - MUSCULOSKELETAL STIFFNESS [None]
